FAERS Safety Report 10183225 (Version 1)
Quarter: 2014Q2

REPORT INFORMATION
  Report Type: Spontaneous
  Country: US (occurrence: US)
  Receive Date: 20140520
  Receipt Date: 20140520
  Transmission Date: 20141212
  Serious: No
  Sender: FDA-Public Use
  Company Number: US-BAYER-2014-063392

PATIENT
  Age: 71 Year
  Sex: Female
  Weight: 81 kg

DRUGS (5)
  1. ALEVE CAPLET [Suspect]
     Indication: INFLAMMATION
     Dosage: 2 DF, PRN
     Route: 048
     Dates: start: 201310
  2. FLORASTOR [Concomitant]
  3. VITAMIN D3 [Concomitant]
  4. CENTRUM SILVER [Concomitant]
  5. ALLEGRA [Concomitant]

REACTIONS (1)
  - Intentional product misuse [None]
